FAERS Safety Report 6647259-8 (Version None)
Quarter: 2010Q1

REPORT INFORMATION
  Report Type: 
  Country: None (occurrence: None)
  Receive Date: 20100323
  Receipt Date: 20100310
  Transmission Date: 20100710
  Serious: Yes (Other)
  Sender: FDA-Public Use
  Company Number: A0850933A

PATIENT
  Age: 20 Year
  Sex: Male

DRUGS (1)
  1. EPIVIR [Suspect]
     Indication: HIV INFECTION
     Route: 048

REACTIONS (1)
  - URTICARIA [None]
